FAERS Safety Report 14381923 (Version 3)
Quarter: 2018Q2

REPORT INFORMATION
  Report Type: Report from Study
  Country: JP (occurrence: JP)
  Receive Date: 20180112
  Receipt Date: 20180402
  Transmission Date: 20180711
  Serious: Yes (Death, Hospitalization, Other)
  Sender: FDA-Public Use
  Company Number: PHJP2016JP006708

PATIENT
  Age: 64 Year
  Sex: Male
  Weight: 59 kg

DRUGS (18)
  1. FARYDAK [Suspect]
     Active Substance: PANOBINOSTAT
     Dosage: 10 MG, QD
     Route: 048
     Dates: start: 20151027, end: 20151130
  2. REBAMIPIDE [Concomitant]
     Active Substance: REBAMIPIDE
     Indication: PROPHYLAXIS
     Dosage: 3 DF, QD
     Route: 048
     Dates: end: 20151027
  3. FARYDAK [Suspect]
     Active Substance: PANOBINOSTAT
     Indication: PLASMA CELL MYELOMA
     Dosage: 15 MG, QD, (DAY1,3,5,8,10,12) (6 ADMINISTRATIONS PER CYCLE)
     Route: 048
     Dates: start: 20151001, end: 20151026
  4. ALLOPURINOL. [Concomitant]
     Active Substance: ALLOPURINOL
     Indication: PROPHYLAXIS
     Dosage: 1 DF, QD
     Route: 048
     Dates: end: 20151017
  5. FARYDAK [Suspect]
     Active Substance: PANOBINOSTAT
     Dosage: 10 MG, QD
     Route: 048
     Dates: start: 20151201, end: 20160127
  6. VELCADE [Suspect]
     Active Substance: BORTEZOMIB
     Dosage: 1.0 MG/M2, QW
     Route: 058
     Dates: start: 20160105, end: 20160127
  7. DEXAMETHASONE. [Concomitant]
     Active Substance: DEXAMETHASONE
     Dosage: 20 MG, FOUR TIMES/CYCLE
     Route: 065
     Dates: start: 20151201, end: 20151214
  8. ALFAROL [Concomitant]
     Active Substance: ALFACALCIDOL
     Indication: PROPHYLAXIS
     Dosage: 1 DF, QD
     Route: 048
     Dates: end: 20151221
  9. URSO [Concomitant]
     Active Substance: URSODIOL
     Indication: JAUNDICE CHOLESTATIC
     Dosage: 6 DF, QD
     Route: 048
     Dates: end: 20160222
  10. VELCADE [Suspect]
     Active Substance: BORTEZOMIB
     Dosage: 1.0 MG/M2, QW
     Route: 058
     Dates: start: 20160128, end: 20160217
  11. OXYCONTIN [Concomitant]
     Active Substance: OXYCODONE HYDROCHLORIDE
     Indication: PRODUCT USED FOR UNKNOWN INDICATION
     Dosage: 10 MG, QD
     Route: 048
     Dates: end: 20151008
  12. BIO-THREE [Concomitant]
     Active Substance: HERBALS
     Indication: PROPHYLAXIS
     Dosage: 3 DF, QD
     Route: 048
     Dates: end: 20151017
  13. NEXIUM [Concomitant]
     Active Substance: ESOMEPRAZOLE MAGNESIUM
     Indication: PROPHYLAXIS
     Dosage: 1 DF, QD
     Route: 048
     Dates: end: 20151221
  14. BACTRAMIN [Concomitant]
     Active Substance: SULFAMETHOXAZOLE\TRIMETHOPRIM
     Indication: PROPHYLAXIS
     Dosage: 1 DF, QW2
     Route: 048
     Dates: end: 20160222
  15. FARYDAK [Suspect]
     Active Substance: PANOBINOSTAT
     Dosage: 10 MG, QD
     Route: 048
     Dates: start: 20160128, end: 20160217
  16. VELCADE [Suspect]
     Active Substance: BORTEZOMIB
     Indication: PLASMA CELL MYELOMA
     Dosage: 1.3 MG/M2, QW2
     Route: 058
     Dates: start: 20151001, end: 20160104
  17. DEXAMETHASONE. [Concomitant]
     Active Substance: DEXAMETHASONE
     Indication: PLASMA CELL MYELOMA
     Dosage: 20 MG, QD 1,2,4,5,8,9,11,12
     Route: 065
     Dates: start: 20151001, end: 20151130
  18. DEXAMETHASONE. [Concomitant]
     Active Substance: DEXAMETHASONE
     Dosage: 20 MG, SIX TIMES/CYCLE
     Route: 065
     Dates: start: 20151215, end: 20160217

REACTIONS (19)
  - White blood cell count decreased [Fatal]
  - Hypokalaemia [Recovered/Resolved]
  - Hepatic function abnormal [Recovered/Resolved]
  - Diarrhoea [Recovered/Resolved]
  - Hypophosphataemia [Recovering/Resolving]
  - Malignant neoplasm progression [Fatal]
  - Orthostatic hypotension [Recovered/Resolved]
  - Plasma cell myeloma [Fatal]
  - Mass [Fatal]
  - Platelet count decreased [Recovering/Resolving]
  - Renal impairment [Not Recovered/Not Resolved]
  - Concomitant disease progression [Not Recovered/Not Resolved]
  - Hepatic function abnormal [Recovered/Resolved]
  - Orthostatic hypotension [Recovered/Resolved]
  - Anaemia [Fatal]
  - Decreased appetite [Recovering/Resolving]
  - Hepatic function abnormal [Recovered/Resolved]
  - Nausea [Recovering/Resolving]
  - Vomiting [Recovering/Resolving]

NARRATIVE: CASE EVENT DATE: 20151001
